FAERS Safety Report 11855530 (Version 4)
Quarter: 2016Q1

REPORT INFORMATION
  Report Type: Spontaneous
  Country: US (occurrence: US)
  Receive Date: 20151221
  Receipt Date: 20160203
  Transmission Date: 20160526
  Serious: Yes (Life-Threatening, Hospitalization, Other)
  Sender: FDA-Public Use
  Company Number: US-BEH-2015056820

PATIENT
  Age: 43 Year
  Sex: Female
  Weight: 92.7 kg

DRUGS (4)
  1. ALBUMIN 25% [Suspect]
     Active Substance: ALBUMIN (HUMAN)
     Indication: FLUID REPLACEMENT
     Dosage: 25 G VARIED BETWEEN Q 8 AND Q 6
     Route: 042
     Dates: start: 20140723, end: 20140802
  2. ALBUMIN 5% [Suspect]
     Active Substance: ALBUMIN (HUMAN)
     Indication: ACUTE KIDNEY INJURY
     Route: 042
     Dates: start: 20140723, end: 20140802
  3. ALBUMIN 25% [Suspect]
     Active Substance: ALBUMIN (HUMAN)
     Indication: ACUTE KIDNEY INJURY
     Dosage: 25 G VARIED BETWEEN Q 8 AND Q 6
     Route: 042
     Dates: start: 20140723, end: 20140802
  4. ALBUMIN 5% [Suspect]
     Active Substance: ALBUMIN (HUMAN)
     Indication: FLUID REPLACEMENT
     Route: 042
     Dates: start: 20140723, end: 20140802

REACTIONS (9)
  - Acute respiratory failure [Recovered/Resolved]
  - Tachypnoea [Recovered/Resolved]
  - Off label use [Recovered/Resolved]
  - Overdose [Recovered/Resolved]
  - Hyperdynamic left ventricle [Recovered/Resolved]
  - Cough [Recovered/Resolved]
  - Crepitations [Recovered/Resolved]
  - Pulmonary oedema [Recovered/Resolved]
  - Blood albumin increased [Recovered/Resolved]

NARRATIVE: CASE EVENT DATE: 20140802
